FAERS Safety Report 23339979 (Version 2)
Quarter: 2024Q1

REPORT INFORMATION
  Report Type: Spontaneous
  Country: US (occurrence: US)
  Receive Date: 20231226
  Receipt Date: 20240326
  Transmission Date: 20240410
  Serious: No
  Sender: FDA-Public Use
  Company Number: US-AMGEN-USASP2023230367

PATIENT
  Age: 83 Year
  Sex: Female

DRUGS (1)
  1. REPATHA [Suspect]
     Active Substance: EVOLOCUMAB
     Indication: Blood cholesterol increased
     Dosage: 420 MILLIGRAM, Q4WK
     Route: 058
     Dates: start: 2020

REACTIONS (5)
  - Brain fog [Unknown]
  - Throat clearing [Unknown]
  - Cough [Unknown]
  - Drug dose omission by device [Unknown]
  - Device use error [Unknown]

NARRATIVE: CASE EVENT DATE: 20231221
